FAERS Safety Report 16291017 (Version 5)
Quarter: 2019Q3

REPORT INFORMATION
  Report Type: Spontaneous
  Country: US (occurrence: US)
  Receive Date: 20190509
  Receipt Date: 20190930
  Transmission Date: 20191004
  Serious: Yes (Death, Hospitalization, Other)
  Sender: FDA-Public Use
  Company Number: US-PFIZER INC-2019198370

PATIENT
  Age: 68 Year
  Sex: Male
  Weight: 81.63 kg

DRUGS (3)
  1. CAPECITABINE. [Suspect]
     Active Substance: CAPECITABINE
     Indication: RECTAL CANCER
     Dosage: 2500 MG, CYCLIC (DAILY 14DAYS ON 7 DAYS OFF)
     Route: 048
     Dates: start: 201609, end: 201701
  2. VALSARTAN. [Concomitant]
     Active Substance: VALSARTAN
     Indication: BLOOD PRESSURE ABNORMAL
     Dosage: 80 MG, UNK
     Dates: start: 20151029, end: 20160116
  3. OXALIPLATIN. [Suspect]
     Active Substance: OXALIPLATIN
     Indication: RECTAL CANCER
     Dosage: UNK, CYCLIC
     Dates: start: 201609, end: 201701

REACTIONS (11)
  - Chromaturia [Unknown]
  - Haemorrhage [Unknown]
  - Bowel movement irregularity [Unknown]
  - Dysarthria [Unknown]
  - Coordination abnormal [Unknown]
  - Flatulence [Unknown]
  - Death [Fatal]
  - Abdominal pain upper [Unknown]
  - Dehydration [Unknown]
  - Asthenia [Unknown]
  - Nasopharyngitis [Recovered/Resolved]

NARRATIVE: CASE EVENT DATE: 201609
